FAERS Safety Report 8051872-3 (Version None)
Quarter: 2012Q1

REPORT INFORMATION
  Report Type: 
  Country: None (occurrence: None)
  Receive Date: 20120110
  Receipt Date: 20111226
  Transmission Date: 20120608
  Serious: Yes (Congenital Anomaly, Other)
  Sender: FDA-Public Use
  Company Number: AXC-2011-000539

PATIENT
  Sex: Male

DRUGS (4)
  1. DICYCLOMINE [Suspect]
     Indication: PRODUCT USED FOR UNKNOWN INDICATION
     Dosage: TRANSPLACENTAL
     Route: 064
  2. PYRIDOXINE HYDROCHLORIDE [Suspect]
     Indication: PRODUCT USED FOR UNKNOWN INDICATION
     Dosage: TRANSPLACENTAL
     Route: 064
  3. DOXYLAMINE SUCCINATE [Suspect]
     Indication: PRODUCT USED FOR UNKNOWN INDICATION
     Dosage: TRANSPLACENTAL
     Route: 064
  4. FLUPHENAZINE ENANTHATE [Suspect]
     Indication: PRODUCT USED FOR UNKNOWN INDICATION
     Dosage: TRANSPLACENTAL
     Route: 064

REACTIONS (15)
  - ANOMALY OF ORBIT, CONGENITAL [None]
  - NEUTROPHIL MORPHOLOGY ABNORMAL [None]
  - FOETAL EXPOSURE DURING PREGNANCY [None]
  - NEONATAL RESPIRATORY DISTRESS SYNDROME [None]
  - HYPERTELORISM OF ORBIT [None]
  - PENIS DISORDER [None]
  - NAEVUS FLAMMEUS [None]
  - PENOSCROTAL TRANSPOSITION [None]
  - SKIN WRINKLING [None]
  - CLEFT LIP AND PALATE [None]
  - HYPOSPADIAS [None]
  - CONGENITAL NYSTAGMUS [None]
  - RECTOURETHRAL FISTULA [None]
  - SKULL MALFORMATION [None]
  - ANAL ATRESIA [None]
